FAERS Safety Report 21800551 (Version 1)
Quarter: 2022Q4

REPORT INFORMATION
  Report Type: Spontaneous
  Country: IT (occurrence: IT)
  Receive Date: 20221230
  Receipt Date: 20221230
  Transmission Date: 20230113
  Serious: Yes (Death)
  Sender: FDA-Public Use
  Company Number: IT-009507513-2212ITA008632

PATIENT
  Age: 66 Year
  Sex: Female

DRUGS (5)
  1. CASPOFUNGIN ACETATE [Suspect]
     Active Substance: CASPOFUNGIN ACETATE
     Indication: Candida sepsis
     Dosage: 70 MG ON DAY 1
  2. CASPOFUNGIN ACETATE [Suspect]
     Active Substance: CASPOFUNGIN ACETATE
     Dosage: FOLLOWED BY 50 MG Q24H
  3. AMPICILLIN SODIUM\SULBACTAM SODIUM [Concomitant]
     Active Substance: AMPICILLIN SODIUM\SULBACTAM SODIUM
     Indication: Listeria sepsis
     Dosage: 2 G/1G EVERY 6 H
  4. GENTAMICIN [Concomitant]
     Active Substance: GENTAMICIN
     Indication: Listeria sepsis
     Dosage: 120MG ONCE A DAY
  5. DEXAMETHASONE [Concomitant]
     Active Substance: DEXAMETHASONE
     Dosage: 8 MG/DAY

REACTIONS (1)
  - Drug ineffective [Fatal]
